FAERS Safety Report 12210593 (Version 3)
Quarter: 2016Q2

REPORT INFORMATION
  Report Type: Spontaneous
  Country: JP (occurrence: JP)
  Receive Date: 20160325
  Receipt Date: 20160627
  Transmission Date: 20160815
  Serious: Yes (Other)
  Sender: FDA-Public Use
  Company Number: JP-GLAXOSMITHKLINE-JP2016JPN040000

PATIENT
  Sex: Female

DRUGS (3)
  1. ZOVIRAX [Suspect]
     Active Substance: ACYCLOVIR
     Indication: ORAL HERPES
     Dosage: UNK
     Route: 048
     Dates: start: 201506
  2. ADALIMUMAB [Concomitant]
     Active Substance: ADALIMUMAB
     Indication: CROHN^S DISEASE
     Dosage: UNK
     Dates: start: 201402
  3. INFLIXIMAB [Concomitant]
     Active Substance: INFLIXIMAB
     Indication: CROHN^S DISEASE
     Dosage: UNK
     Dates: start: 2006

REACTIONS (7)
  - Gastritis erosive [Recovering/Resolving]
  - Odynophagia [Unknown]
  - Herpes virus infection [Recovered/Resolved]
  - Erythema nodosum [Unknown]
  - Crohn^s disease [Unknown]
  - Oesophageal ulcer [Recovering/Resolving]
  - Hyperthermia [Unknown]

NARRATIVE: CASE EVENT DATE: 201507
